FAERS Safety Report 9259121 (Version 1)
Quarter: 2013Q2

REPORT INFORMATION
  Report Type: Spontaneous
  Country: BR (occurrence: BR)
  Receive Date: 20130426
  Receipt Date: 20130426
  Transmission Date: 20140414
  Serious: Yes (Hospitalization)
  Sender: FDA-Public Use
  Company Number: BR-ASTRAZENECA-2013SE26773

PATIENT
  Age: 69 Year
  Sex: Female
  Weight: 67 kg

DRUGS (6)
  1. ATACAND HCT [Suspect]
     Indication: HYPERTENSION
     Dosage: 16/12.5 MG, DAILY
     Route: 048
     Dates: start: 2009
  2. SELOZOK [Suspect]
     Route: 048
     Dates: start: 201304
  3. BRILINTA [Concomitant]
     Dates: start: 201304
  4. SOMALGIN [Concomitant]
     Dates: start: 2009
  5. CALTREN [Concomitant]
     Indication: HYPERTENSION
     Dosage: DAILY
     Dates: start: 201204, end: 201304
  6. ATORVASTATIN [Concomitant]
     Indication: BLOOD CHOLESTEROL INCREASED
     Dates: start: 2008, end: 201304

REACTIONS (6)
  - Coronary artery occlusion [Recovered/Resolved]
  - Pain in extremity [Recovered/Resolved]
  - Dyspnoea [Recovered/Resolved]
  - Blood pressure increased [Recovered/Resolved]
  - Weight decreased [Not Recovered/Not Resolved]
  - Off label use [Not Recovered/Not Resolved]
